FAERS Safety Report 9267034 (Version 1)
Quarter: 2013Q2

REPORT INFORMATION
  Report Type: Spontaneous
  Country: US (occurrence: US)
  Receive Date: 20130502
  Receipt Date: 20130502
  Transmission Date: 20140414
  Serious: No
  Sender: FDA-Public Use
  Company Number: US-PFIZER INC-2013136355

PATIENT
  Age: 79 Year
  Sex: Male
  Weight: 88.44 kg

DRUGS (16)
  1. LYRICA [Suspect]
     Dosage: 100 MG, 2X/DAY
  2. CALCIUM CITRATE [Concomitant]
     Indication: BLOOD TESTOSTERONE DECREASED
     Dosage: 1260 MG, 2X/DAY
  3. VITAMIN D [Concomitant]
     Dosage: 20000 IU, 2X/DAY
  4. VITAMIN D [Concomitant]
     Indication: BLOOD TESTOSTERONE DECREASED
  5. CENTRUM SILVER [Concomitant]
     Dosage: DAILY
  6. CENTRUM SILVER [Concomitant]
     Indication: VITAMIN SUPPLEMENTATION
  7. TIMOLOL [Concomitant]
     Dosage: ONE DROP IN LEFT EYE DAILY
  8. TIMOLOL [Concomitant]
     Indication: GLAUCOMA
  9. LUMIGAN [Concomitant]
     Indication: GLAUCOMA
     Dosage: ONE DROP IN LEFT EYE DAILY
  10. MECLIZINE HYDROCHLORIDE [Concomitant]
     Indication: BALANCE DISORDER
     Dosage: 50MG (2X 25 MG) IN MORNING AND 25MG IN EVENING
  11. WELCHOL [Concomitant]
     Indication: BLOOD TRIGLYCERIDES INCREASED
     Dosage: 650 MG, 3X/DAY
  12. AMITRIPTYLINE [Concomitant]
     Indication: SLEEP DISORDER
     Dosage: 100 MG DAILY
  13. OMEPRAZOLE [Concomitant]
     Indication: GASTROOESOPHAGEAL REFLUX DISEASE
     Dosage: 40 MG, 2X/DAY
  14. LIPITOR [Concomitant]
     Indication: BLOOD CHOLESTEROL
     Dosage: 20 MG DAILY
  15. ACETYLSALICYLIC ACID [Concomitant]
     Dosage: 81 MG DAILY
  16. ACETYLSALICYLIC ACID [Concomitant]
     Indication: CARDIAC DISORDER

REACTIONS (3)
  - Dry skin [Unknown]
  - Dry eye [Unknown]
  - Dry mouth [Unknown]
